FAERS Safety Report 10293289 (Version 2)
Quarter: 2014Q3

REPORT INFORMATION
  Report Type: Spontaneous
  Country: US (occurrence: US)
  Receive Date: 20140710
  Receipt Date: 20140710
  Transmission Date: 20150326
  Serious: Yes (Death)
  Sender: FDA-Public Use
  Company Number: US-GLAXOSMITHKLINE-A0912890A

PATIENT
  Age: 75 Year
  Sex: Female
  Weight: 110.5 kg

DRUGS (1)
  1. AVANDIA [Suspect]
     Active Substance: ROSIGLITAZONE MALEATE
     Indication: DIABETES MELLITUS
     Dosage: 8MG PER DAY
     Route: 048
     Dates: start: 200502, end: 200609

REACTIONS (3)
  - Traumatic lung injury [Unknown]
  - Cerebrovascular accident [Fatal]
  - Oedema [Unknown]

NARRATIVE: CASE EVENT DATE: 200604
